FAERS Safety Report 9407652 (Version 1)
Quarter: 2013Q3

REPORT INFORMATION
  Report Type: Report from Study
  Country: CA (occurrence: CA)
  Receive Date: 20130718
  Receipt Date: 20130718
  Transmission Date: 20140515
  Serious: Yes (Other)
  Sender: FDA-Public Use
  Company Number: CA-JNJFOC-20130710455

PATIENT
  Sex: Male

DRUGS (11)
  1. REMICADE [Suspect]
     Indication: COLITIS ULCERATIVE
     Dosage: 49 INFUSIONS TILL DATE
     Route: 042
  2. CELEXA [Concomitant]
     Route: 065
  3. PARIET [Concomitant]
     Route: 065
  4. ENTOCORT [Concomitant]
     Route: 065
  5. OXYCOCET [Concomitant]
     Route: 065
  6. DIAZEPAM [Concomitant]
     Route: 065
  7. OXYNEO [Concomitant]
     Route: 065
  8. HYDROMORPHONE [Concomitant]
     Route: 065
  9. NAPROXEN [Concomitant]
     Route: 065
  10. BACLOFEN [Concomitant]
     Route: 065
  11. GABAPENTIN [Concomitant]
     Route: 065

REACTIONS (3)
  - Haemorrhage urinary tract [Unknown]
  - Pain [Unknown]
  - Nausea [Unknown]
